FAERS Safety Report 25766561 (Version 1)
Quarter: 2025Q3

REPORT INFORMATION
  Report Type: Spontaneous
  Country: US (occurrence: None)
  Receive Date: 20250905
  Receipt Date: 20250905
  Transmission Date: 20251020
  Serious: Yes (Death)
  Sender: FDA-CTU
  Company Number: None

PATIENT
  Age: 19 Year
  Sex: Female
  Weight: 46.6 kg

DRUGS (3)
  1. BLEOMYCIN [Suspect]
     Active Substance: BLEOMYCIN SULFATE
     Dates: start: 20240617
  2. CARBOPLATIN [Suspect]
     Active Substance: CARBOPLATIN
     Dates: start: 20240603
  3. ETOPOSIDE [Suspect]
     Active Substance: ETOPOSIDE
     Dates: start: 20240607

REACTIONS (3)
  - Ovarian germ cell endodermal sinus tumour stage II [None]
  - Malignant neoplasm progression [None]
  - Metastases to liver [None]

NARRATIVE: CASE EVENT DATE: 20250902
